FAERS Safety Report 14695965 (Version 1)
Quarter: 2018Q1

REPORT INFORMATION
  Report Type: Report from Study
  Country: None (occurrence: US)
  Receive Date: 20180329
  Receipt Date: 20180329
  Transmission Date: 20180509
  Serious: Yes (Other)
  Sender: FDA-Public Use
  Company Number: US-BAUSCH-BL-2018-007938

PATIENT
  Sex: Male

DRUGS (1)
  1. CUPRIMINE [Suspect]
     Active Substance: PENICILLAMINE
     Indication: PRODUCT USED FOR UNKNOWN INDICATION
     Dosage: 2 TABLETS FOUR TIMES A DAY
     Route: 065

REACTIONS (5)
  - Erectile dysfunction [Unknown]
  - Urine flow decreased [Unknown]
  - Nocturia [Unknown]
  - Pneumonia [Unknown]
  - Pollakiuria [Unknown]
